FAERS Safety Report 13459340 (Version 2)
Quarter: 2017Q2

REPORT INFORMATION
  Report Type: Report from Study
  Country: CO (occurrence: CO)
  Receive Date: 20170419
  Receipt Date: 20170504
  Transmission Date: 20170830
  Serious: Yes (Hospitalization)
  Sender: FDA-Public Use
  Company Number: PHHY2016CO177893

PATIENT
  Age: 22 Year
  Sex: Female
  Weight: 51 kg

DRUGS (1)
  1. TASIGNA [Suspect]
     Active Substance: NILOTINIB
     Indication: CHRONIC MYELOID LEUKAEMIA
     Dosage: 200 MG, (TWO CAPSULES OF 200 MG EVERY 12 HOURS)
     Route: 048
     Dates: start: 20111222

REACTIONS (10)
  - Menstrual disorder [Unknown]
  - Splenomegaly [Unknown]
  - Cardiac murmur [Unknown]
  - Gait disturbance [Unknown]
  - Eating disorder [Unknown]
  - Platelet count decreased [Unknown]
  - Haemoglobin decreased [Unknown]
  - Splenitis [Unknown]
  - Sleep disorder [Unknown]
  - Inappropriate schedule of drug administration [Unknown]

NARRATIVE: CASE EVENT DATE: 20161201
